FAERS Safety Report 19740548 (Version 2)
Quarter: 2021Q3

REPORT INFORMATION
  Report Type: Other
  Country: US (occurrence: US)
  Receive Date: 20210825
  Receipt Date: 20210831
  Transmission Date: 20211014
  Serious: Yes (Other)
  Sender: FDA-Public Use
  Company Number: US-ROCHE-2895447

PATIENT
  Sex: Female

DRUGS (1)
  1. XELODA [Suspect]
     Active Substance: CAPECITABINE
     Indication: BREAST CANCER METASTATIC
     Dosage: TAKE 2 TABLET(S) BY MOUTH TWICE A DAY AFTER MEALS W/GLASS FULL OF WATER FOR 2 WEEKS ON, 1 WEEK OFF
     Route: 048

REACTIONS (1)
  - Metastatic neoplasm [Unknown]
